FAERS Safety Report 12402538 (Version 1)
Quarter: 2016Q2

REPORT INFORMATION
  Report Type: Spontaneous
  Country: US (occurrence: US)
  Receive Date: 20160525
  Receipt Date: 20160525
  Transmission Date: 20160815
  Serious: Yes (Hospitalization, Other)
  Sender: FDA-Public Use
  Company Number: US-ALEXION PHARMACEUTICALS INC-A201603618

PATIENT
  Sex: Female

DRUGS (1)
  1. SOLIRIS [Suspect]
     Active Substance: ECULIZUMAB
     Indication: HAEMOLYTIC URAEMIC SYNDROME
     Dosage: UNK
     Route: 042

REACTIONS (5)
  - Blood potassium decreased [Unknown]
  - Blood albumin decreased [Unknown]
  - Clostridium difficile infection [Unknown]
  - Blood magnesium decreased [Unknown]
  - Urinary tract infection enterococcal [Unknown]

NARRATIVE: CASE EVENT DATE: 20160512
